FAERS Safety Report 13192214 (Version 1)
Quarter: 2017Q1

REPORT INFORMATION
  Report Type: Spontaneous
  Country: US (occurrence: US)
  Receive Date: 20170207
  Receipt Date: 20170207
  Transmission Date: 20170428
  Serious: No
  Sender: FDA-Public Use
  Company Number: US-BAYER-2017-023570

PATIENT
  Age: 67 Year
  Sex: Female

DRUGS (1)
  1. BETASERON [Suspect]
     Active Substance: INTERFERON BETA-1B
     Dosage: 0.3 MG, UNK
     Dates: start: 200502

REACTIONS (5)
  - Arthropathy [None]
  - Gait disturbance [None]
  - Orthosis user [None]
  - Injection site induration [None]
  - Injection site reaction [None]

NARRATIVE: CASE EVENT DATE: 20170206
